FAERS Safety Report 25203212 (Version 1)
Quarter: 2025Q2

REPORT INFORMATION
  Report Type: Report from Study
  Country: US (occurrence: US)
  Receive Date: 20250416
  Receipt Date: 20250416
  Transmission Date: 20250716
  Serious: Yes (Other)
  Sender: BIOCODEX
  Company Number: US-BIOCODEX2-2024000149

PATIENT
  Age: 13 Year
  Sex: Male
  Weight: 57.5 kg

DRUGS (5)
  1. DIACOMIT [Suspect]
     Active Substance: STIRIPENTOL
     Indication: Severe myoclonic epilepsy of infancy
     Dosage: 750MG TWICE DAILY
     Route: 048
     Dates: start: 20240117
  2. DIACOMIT [Suspect]
     Active Substance: STIRIPENTOL
     Indication: Severe myoclonic epilepsy of infancy
     Dosage: 750MG TWICE DAILY
     Route: 048
     Dates: start: 20240117
  3. DEPAKOTE [Concomitant]
     Active Substance: DIVALPROEX SODIUM
     Indication: Product used for unknown indication
     Route: 065
  4. EPIDIOLEX [Concomitant]
     Active Substance: CANNABIDIOL
     Indication: Product used for unknown indication
     Route: 065
  5. FINTEPLA [Concomitant]
     Active Substance: FENFLURAMINE
     Indication: Product used for unknown indication
     Route: 065

REACTIONS (2)
  - Seizure [Unknown]
  - Off label use [Unknown]

NARRATIVE: CASE EVENT DATE: 20240117
